FAERS Safety Report 6259885-9 (Version None)
Quarter: 2009Q3

REPORT INFORMATION
  Report Type: 
  Country: None (occurrence: None)
  Receive Date: 20090706
  Receipt Date: 20090706
  Transmission Date: 20100115
  Serious: Yes (Hospitalization)
  Sender: FDA-Public Use
  Company Number: None

PATIENT
  Sex: Female
  Weight: 82.1011 kg

DRUGS (1)
  1. LORAZEPAM [Suspect]
     Indication: AGITATION
     Dosage: 2MG XL IV BLOUS
     Route: 040
     Dates: start: 20090701, end: 20090701

REACTIONS (2)
  - DYSPNOEA [None]
  - PCO2 INCREASED [None]
